FAERS Safety Report 16953691 (Version 3)
Quarter: 2019Q4

REPORT INFORMATION
  Report Type: Spontaneous
  Country: ES (occurrence: ES)
  Receive Date: 20191023
  Receipt Date: 20191219
  Transmission Date: 20200122
  Serious: Yes (Other)
  Sender: FDA-Public Use
  Company Number: ES-SA-2019SA291934

PATIENT
  Age: 53 Year
  Sex: Male

DRUGS (3)
  1. SEVELAMER HYDROCHLORIDE. [Suspect]
     Active Substance: SEVELAMER HYDROCHLORIDE
     Indication: CALCIPHYLAXIS
     Dosage: 8 G, QD
  2. VITAMIN K [Concomitant]
     Active Substance: PHYTONADIONE
     Indication: CALCIPHYLAXIS
  3. SODIUM THIOSULFATE [Concomitant]
     Active Substance: SODIUM THIOSULFATE
     Indication: CALCIPHYLAXIS

REACTIONS (11)
  - Crystal deposit intestine [Recovering/Resolving]
  - Haemoglobin decreased [Recovering/Resolving]
  - Gastrointestinal haemorrhage [Recovering/Resolving]
  - Large intestine polyp [Recovering/Resolving]
  - Rectal haemorrhage [Recovered/Resolved]
  - Foreign body reaction [Recovering/Resolving]
  - Diverticulum intestinal [Recovering/Resolving]
  - Pseudopolyp [Recovering/Resolving]
  - Colitis [Recovering/Resolving]
  - Gastrointestinal injury [Recovering/Resolving]
  - Gastric polyps [Recovering/Resolving]
